FAERS Safety Report 24565373 (Version 1)
Quarter: 2024Q4

REPORT INFORMATION
  Report Type: Spontaneous
  Country: JP (occurrence: JP)
  Receive Date: 20241030
  Receipt Date: 20241030
  Transmission Date: 20250114
  Serious: Yes (Other)
  Sender: RANBAXY
  Company Number: JP-SUN PHARMACEUTICAL INDUSTRIES LTD-2024RR-475526

PATIENT
  Age: 56 Year
  Sex: Male

DRUGS (5)
  1. PREDNISOLONE [Suspect]
     Active Substance: PREDNISOLONE
     Indication: Oedema
     Dosage: 20 MG/DAY FOR 3 YEARS, PER ORAL
     Route: 048
  2. SPIRONOLACTONE [Suspect]
     Active Substance: SPIRONOLACTONE
     Indication: Oedema
     Dosage: 100 MG/DAY FOR 3 YEARS, PER ORAL
     Route: 048
  3. VORICONAZOLE [Suspect]
     Active Substance: VORICONAZOLE
     Indication: Infection
     Dosage: 300 MG X 2/DAY
     Route: 042
  4. AMPICILLIN SODIUM\SULBACTAM SODIUM [Suspect]
     Active Substance: AMPICILLIN SODIUM\SULBACTAM SODIUM
     Indication: Infection
     Dosage: 3 G X 4/DAY
     Route: 042
  5. VANCOMYCIN [Suspect]
     Active Substance: VANCOMYCIN
     Indication: Infection
     Dosage: 1000 MG X 2/DAY
     Route: 042

REACTIONS (2)
  - Disease recurrence [Unknown]
  - Hepatic enzyme increased [Unknown]
